FAERS Safety Report 6963755 (Version 2)
Quarter: 2020Q3

REPORT INFORMATION
  Report Type: Report from Study
  Country: US (occurrence: US)
  Receive Date: 20090408
  Receipt Date: 20090609
  Transmission Date: 20201104
  Serious: Yes (Death)
  Sender: FDA-Public Use
  Company Number: US-ROCHE-624462

PATIENT
  Sex: Female

DRUGS (1)
  1. IBANDRONIC ACID. [Suspect]
     Active Substance: IBANDRONIC ACID
     Indication: OSTEOPOROSIS
     Route: 065

REACTIONS (3)
  - Asthma [Fatal]
  - Chronic obstructive pulmonary disease [Fatal]
  - Hyperlipidaemia [Fatal]
